FAERS Safety Report 6251982-7 (Version None)
Quarter: 2009Q2

REPORT INFORMATION
  Report Type: 
  Country: None (occurrence: None)
  Receive Date: 20090630
  Receipt Date: 20040127
  Transmission Date: 20091009
  Serious: Yes (Death, Hospitalization)
  Sender: FDA-Public Use
  Company Number: US-ROCHE-638299

PATIENT
  Sex: Male

DRUGS (30)
  1. ENFUVIRTIDE [Suspect]
     Indication: PNEUMONIA
     Route: 065
     Dates: start: 20030818, end: 20040925
  2. EPIVIR [Concomitant]
     Dates: start: 20030623, end: 20040925
  3. NORVIR [Concomitant]
     Dates: start: 20030623, end: 20040101
  4. AGENERASE [Concomitant]
     Dates: start: 20031105, end: 20040901
  5. RESCRIPTOR [Concomitant]
     Dates: start: 20031105, end: 20040608
  6. VIRAMUNE [Concomitant]
     Dates: start: 20030101, end: 20030623
  7. ZIAGEN [Concomitant]
     Dates: start: 20030101, end: 20030623
  8. TEQUIN [Concomitant]
     Dates: start: 20030418
  9. DOXYCYCLINE [Concomitant]
     Dates: start: 20030922, end: 20030928
  10. AMANTADINE HCL [Concomitant]
     Dates: start: 20031105, end: 20031221
  11. BACTRIM [Concomitant]
     Dates: start: 20031105, end: 20040101
  12. BACTRIM [Concomitant]
     Dates: start: 20040229, end: 20040314
  13. BACTRIM [Concomitant]
     Dosage: STOP DATE:2004
     Dates: start: 20040602
  14. DIFLUCAN [Concomitant]
     Dates: start: 20031105, end: 20040223
  15. DIFLUCAN [Concomitant]
     Dates: start: 20040224, end: 20040302
  16. DIFLUCAN [Concomitant]
     Dates: start: 20040302, end: 20040901
  17. LEVAQUIN [Concomitant]
     Route: 042
     Dates: start: 20031105, end: 20031109
  18. LEVAQUIN [Concomitant]
     Route: 042
     Dates: start: 20031109, end: 20031118
  19. CIPRO [Concomitant]
     Route: 042
     Dates: start: 20031108, end: 20031109
  20. VANCOMYCIN [Concomitant]
     Route: 042
     Dates: start: 20040223, end: 20040228
  21. VANCOMYCIN [Concomitant]
     Route: 042
     Dates: start: 20040229, end: 20040302
  22. VANCOMYCIN [Concomitant]
     Dosage: STOP DATE:2004
     Route: 042
     Dates: start: 20040628
  23. ZOSYN [Concomitant]
     Route: 042
     Dates: start: 20040223, end: 20040229
  24. MYCELEX [Concomitant]
     Dates: start: 20040317, end: 20040326
  25. MYCELEX [Concomitant]
     Dosage: STOP DATE:2004
     Dates: start: 20040825
  26. BEXTRA [Concomitant]
     Dosage: STOP DATE:2004
     Dates: start: 20040414
  27. ROCEPHIN [Concomitant]
     Dosage: STOP DATE:2004
     Route: 042
     Dates: start: 20040602
  28. DECADRON [Concomitant]
     Route: 042
     Dates: start: 20040810, end: 20040813
  29. CEFZIL [Concomitant]
     Dates: start: 20040825
  30. AMPHOTEC [Concomitant]
     Dosage: STOP DATE:SEPTEMBER 2004
     Route: 042
     Dates: start: 20040922

REACTIONS (19)
  - ACQUIRED IMMUNODEFICIENCY SYNDROME [None]
  - ANAEMIA [None]
  - BLOOD OSMOLARITY DECREASED [None]
  - CACHEXIA [None]
  - CONVULSION [None]
  - DEATH [None]
  - DECUBITUS ULCER [None]
  - DEHYDRATION [None]
  - ENCEPHALOPATHY [None]
  - EROSIVE OESOPHAGITIS [None]
  - HEPATITIS C [None]
  - HYPONATRAEMIA [None]
  - NAUSEA [None]
  - ORAL CANDIDIASIS [None]
  - PSEUDOMONAS INFECTION [None]
  - RECTAL ABSCESS [None]
  - STAPHYLOCOCCAL INFECTION [None]
  - VENTRICULAR TACHYCARDIA [None]
  - VOMITING [None]
